FAERS Safety Report 19445574 (Version 1)
Quarter: 2021Q2

REPORT INFORMATION
  Report Type: Other
  Country: US (occurrence: US)
  Receive Date: 20210622
  Receipt Date: 20210622
  Transmission Date: 20210717
  Serious: Yes (Life-Threatening, Hospitalization, Other)
  Sender: FDA-Public Use
  Company Number: US-GUARDIAN DRUG COMPANY-2112965

PATIENT
  Age: 17 Year
  Sex: Female

DRUGS (1)
  1. CHILDRENS IBUPROFEN [Suspect]
     Active Substance: IBUPROFEN
     Indication: PRODUCT USED FOR UNKNOWN INDICATION
     Route: 048

REACTIONS (9)
  - Overdose [Recovering/Resolving]
  - Multiple organ dysfunction syndrome [Recovering/Resolving]
  - Depressed level of consciousness [Recovering/Resolving]
  - Shock [Recovering/Resolving]
  - Suicide attempt [Recovering/Resolving]
  - Metabolic acidosis [Recovering/Resolving]
  - Seizure [Recovering/Resolving]
  - Toxicity to various agents [Recovering/Resolving]
  - Renal failure [Recovered/Resolved]
